FAERS Safety Report 10048764 (Version 1)
Quarter: 2014Q1

REPORT INFORMATION
  Report Type: Spontaneous
  Country: US (occurrence: US)
  Receive Date: 20140331
  Receipt Date: 20140331
  Transmission Date: 20141002
  Serious: Yes (Other)
  Sender: FDA-Public Use
  Company Number: US-ELI_LILLY_AND_COMPANY-US201403007530

PATIENT
  Sex: Male

DRUGS (19)
  1. HUMALOG LISPRO [Suspect]
     Indication: TYPE 2 DIABETES MELLITUS
     Dosage: UNK, PRN
     Dates: start: 1999
  2. HUMALOG LISPRO [Suspect]
     Dosage: UNK, PRN
     Dates: start: 20140226, end: 20140319
  3. LANTUS [Concomitant]
     Dosage: 20 U, QD
  4. ASCORBIC ACID [Concomitant]
     Dosage: 500 MG, QD
  5. ASPIRIN [Concomitant]
     Dosage: 81 MG, QD
  6. ATORVASTATIN [Concomitant]
     Dosage: 20 MG, QD
  7. BUMEX [Concomitant]
     Dosage: 1 MG, QD
  8. COREG [Concomitant]
     Dosage: 3.125 MG, BID
  9. CARDURA [Concomitant]
     Dosage: 4 MG, BID
  10. IRON [Concomitant]
     Dosage: 325 MG, QD
  11. MULTIVITAMIN                       /00097801/ [Concomitant]
     Dosage: UNK UNK, QD
  12. MYFORTIC [Concomitant]
     Dosage: 360 MG, BID
  13. NIMODIPINE [Concomitant]
     Dosage: 60 MG, QD
     Route: 048
  14. OMEGA 3                            /01334101/ [Concomitant]
     Dosage: 1000 MG, QD
  15. PREDNISONE [Concomitant]
     Dosage: 1 MG, BID
  16. PROGRAF [Concomitant]
     Dosage: 1 MG, BID
  17. FLOMAX [Concomitant]
     Dosage: 0.4 MG, EACH EVENING
  18. PREVACID [Concomitant]
     Dosage: 30 MG, BID
  19. PRILOSEC                           /00661201/ [Concomitant]
     Dosage: 20 MG, BID

REACTIONS (3)
  - Renal failure [Recovered/Resolved]
  - Blood glucose increased [Unknown]
  - Drug ineffective [Recovered/Resolved]
